FAERS Safety Report 24555693 (Version 6)
Quarter: 2025Q1

REPORT INFORMATION
  Report Type: Spontaneous
  Country: US (occurrence: US)
  Receive Date: 20241028
  Receipt Date: 20250228
  Transmission Date: 20250408
  Serious: Yes (Hospitalization)
  Sender: KARYOPHARM THERAPEUTICS
  Company Number: US-KARYOPHARM-2024KPT001715

PATIENT

DRUGS (31)
  1. XPOVIO [Suspect]
     Active Substance: SELINEXOR
     Indication: Plasma cell myeloma
     Dosage: 100 MG, WEEKLY
     Route: 048
  2. XPOVIO [Suspect]
     Active Substance: SELINEXOR
     Dosage: 100 MG, WEEKLY
     Route: 048
     Dates: start: 20241106
  3. CYCLOPHOSPHAMIDE [Concomitant]
     Active Substance: CYCLOPHOSPHAMIDE
  4. DEXAMETHASONE [Concomitant]
     Active Substance: DEXAMETHASONE
  5. PRIVIGEN [Concomitant]
     Active Substance: HUMAN IMMUNOGLOBULIN G
  6. CEFEPIME HYDROCHLORIDE [Concomitant]
     Active Substance: CEFEPIME HYDROCHLORIDE
  7. CLONIDINE HYDROCHLORIDE [Concomitant]
     Active Substance: CLONIDINE HYDROCHLORIDE
  8. CYCLOBENZAPRINE HYDROCHLORIDE [Concomitant]
     Active Substance: CYCLOBENZAPRINE HYDROCHLORIDE
  9. DARZALEX [Concomitant]
     Active Substance: DARATUMUMAB
     Route: 042
  10. FAMOTIDINE [Concomitant]
     Active Substance: FAMOTIDINE
  11. FLUCONAZOLE [Concomitant]
     Active Substance: FLUCONAZOLE
  12. FUROSEMIDE [Concomitant]
     Active Substance: FUROSEMIDE
  13. ALBUTEROL\IPRATROPIUM [Concomitant]
     Active Substance: ALBUTEROL\IPRATROPIUM
  14. KYPROLIS [Concomitant]
     Active Substance: CARFILZOMIB
     Route: 042
  15. LACTULOSE [Concomitant]
     Active Substance: LACTULOSE
  16. LOVENOX [Concomitant]
     Active Substance: ENOXAPARIN SODIUM
  17. MEGESTROL ACETATE [Concomitant]
     Active Substance: MEGESTROL ACETATE
  18. NORCO [Concomitant]
     Active Substance: ACETAMINOPHEN\HYDROCODONE BITARTRATE
  19. OXYCODONE [Concomitant]
     Active Substance: OXYCODONE
  20. PANTOPRAZOLE [Concomitant]
     Active Substance: PANTOPRAZOLE
  21. PROCHLORPERAZINE [Concomitant]
     Active Substance: PROCHLORPERAZINE
  22. ROSUVASTATIN CALCIUM [Concomitant]
     Active Substance: ROSUVASTATIN CALCIUM
  23. SOLU-MEDROL [Concomitant]
     Active Substance: METHYLPREDNISOLONE SODIUM SUCCINATE
  24. SULFAMETHOXAZOLE AND TRIMETHOPRIM [Concomitant]
     Active Substance: SULFAMETHOXAZOLE\TRIMETHOPRIM
     Route: 048
  25. SYMBICORT [Concomitant]
     Active Substance: BUDESONIDE\FORMOTEROL FUMARATE DIHYDRATE
  26. VALGANCICLOVIR HYDROCHLORIDE [Concomitant]
     Active Substance: VALGANCICLOVIR HYDROCHLORIDE
  27. ZOLEDRONIC ACID [Concomitant]
     Active Substance: ZOLEDRONIC ACID
  28. AMITRIPTYLINE HYDROCHLORIDE [Concomitant]
     Active Substance: AMITRIPTYLINE HYDROCHLORIDE
     Route: 048
  29. AMLODIPINE [Concomitant]
     Active Substance: AMLODIPINE BESYLATE
  30. BENDAMUSTINE HYDROCHLORIDE [Concomitant]
     Active Substance: BENDAMUSTINE HYDROCHLORIDE
  31. BORTEZOMIB [Concomitant]
     Active Substance: BORTEZOMIB

REACTIONS (8)
  - Pain in extremity [Not Recovered/Not Resolved]
  - Neoplasm [Unknown]
  - Back pain [Unknown]
  - Fatigue [Unknown]
  - Diarrhoea [Unknown]
  - Nausea [Not Recovered/Not Resolved]
  - Decreased appetite [Not Recovered/Not Resolved]
  - Red blood cell count decreased [Unknown]

NARRATIVE: CASE EVENT DATE: 20240101
